FAERS Safety Report 6568636-X (Version None)
Quarter: 2010Q1

REPORT INFORMATION
  Report Type: 
  Country: None (occurrence: None)
  Receive Date: 20100203
  Receipt Date: 20100122
  Transmission Date: 20100710
  Serious: Yes (Hospitalization)
  Sender: FDA-Public Use
  Company Number: DE-AMGEN-UK378118

PATIENT
  Age: 51 Year

DRUGS (8)
  1. NEULASTA [Suspect]
     Indication: CHEMOTHERAPY
     Route: 058
     Dates: start: 20090701
  2. DOCETAXEL [Suspect]
     Route: 041
     Dates: start: 20090922
  3. EPIRUBICIN [Suspect]
     Route: 041
     Dates: start: 20090922
  4. CYCLOPHOSPHAMIDE [Suspect]
     Route: 042
     Dates: start: 20090922
  5. METOHEXAL [Concomitant]
     Route: 048
  6. LEVOMEPROMAZINE [Concomitant]
     Route: 048
  7. HYDROCHLOROTHIAZIDE [Concomitant]
     Route: 048
  8. UNSPECIFIED ANTINEOPLASTIC AGENT [Concomitant]
     Dates: start: 20090716

REACTIONS (3)
  - CHEST PAIN [None]
  - SINUS TACHYCARDIA [None]
  - VENTRICULAR EXTRASYSTOLES [None]
